FAERS Safety Report 24214417 (Version 2)
Quarter: 2024Q3

REPORT INFORMATION
  Report Type: Report from Study
  Country: DE (occurrence: DE)
  Receive Date: 20240815
  Receipt Date: 20240830
  Transmission Date: 20241017
  Serious: Yes (Congenital Anomaly)
  Sender: TEVA
  Company Number: DE-TEVA-VS-3231530

PATIENT
  Age: 4 Day

DRUGS (2)
  1. LACOSAMIDE [Suspect]
     Active Substance: LACOSAMIDE
     Indication: Epilepsy
     Route: 064
  2. LEVETIRACETAM [Suspect]
     Active Substance: LEVETIRACETAM
     Indication: Epilepsy
     Route: 064

REACTIONS (4)
  - Atrial septal defect [Unknown]
  - Feeling jittery [Unknown]
  - Foetal exposure during pregnancy [Unknown]
  - Hypercalcaemia [Unknown]
